FAERS Safety Report 9412035 (Version 1)
Quarter: 2013Q3

REPORT INFORMATION
  Report Type: Spontaneous
  Country: US (occurrence: None)
  Receive Date: 20130719
  Receipt Date: 20130719
  Transmission Date: 20140515
  Serious: Yes (Other)
  Sender: FDA-Public Use
  Company Number: None

PATIENT
  Age: 41 Year
  Sex: Female
  Weight: 67.13 kg

DRUGS (3)
  1. VENOFER [Suspect]
     Indication: IRON DEFICIENCY ANAEMIA
     Dosage: 1 HOUR INFUSION 3 DOSES
     Route: 042
     Dates: start: 20130624, end: 20130624
  2. VENOFER [Suspect]
     Dosage: 1 HOUR INFUSION 3 DOSES
     Route: 042
     Dates: start: 20130624, end: 20130624
  3. VENOFER [Suspect]
     Indication: TREATMENT FAILURE
     Dosage: 1 HOUR INFUSION.
     Dates: start: 20130626, end: 20130626

REACTIONS (8)
  - Pain in extremity [None]
  - Hypoaesthesia [None]
  - Burning sensation [None]
  - Hyperaesthesia [None]
  - Arthropathy [None]
  - Balance disorder [None]
  - Feeling cold [None]
  - Muscular weakness [None]
